FAERS Safety Report 5224563-1 (Version None)
Quarter: 2007Q1

REPORT INFORMATION
  Report Type: 
  Country: None (occurrence: None)
  Receive Date: 20070126
  Receipt Date: 20070112
  Transmission Date: 20070707
  Serious: Yes (Other)
  Sender: FDA-Public Use
  Company Number: 2006US-03315

PATIENT
  Age: 39 Year
  Sex: Female

DRUGS (1)
  1. CEFUROXIME AXETIL [Suspect]
     Indication: SINUSITIS
     Dosage: 500 MG, BID, ORAL
     Route: 048
     Dates: start: 20060804, end: 20060813

REACTIONS (5)
  - COUGH [None]
  - DYSPHAGIA [None]
  - DYSPNOEA [None]
  - RETCHING [None]
  - THROAT IRRITATION [None]
